FAERS Safety Report 20003648 (Version 1)
Quarter: 2021Q4

REPORT INFORMATION
  Report Type: Spontaneous
  Country: ES (occurrence: ES)
  Receive Date: 20211027
  Receipt Date: 20211027
  Transmission Date: 20220303
  Serious: Yes (Other)
  Sender: FDA-Public Use
  Company Number: None

PATIENT
  Age: 68 Year
  Sex: Male

DRUGS (12)
  1. PEMETREXED [Suspect]
     Active Substance: PEMETREXED
     Indication: Product used for unknown indication
     Dosage: 825 MG, CYCLICAL
     Route: 042
     Dates: start: 20210203
  2. KEYTRUDA [Suspect]
     Active Substance: PEMBROLIZUMAB
     Indication: Product used for unknown indication
     Dosage: 200 MG, CYCLICAL
     Route: 042
     Dates: start: 20210203, end: 20210226
  3. CISPLATIN [Suspect]
     Active Substance: CISPLATIN
     Indication: Product used for unknown indication
     Dosage: 124 MG, CYCLICAL
     Route: 042
     Dates: start: 20210203, end: 20210226
  4. METAMIZOLE SODIUM [Concomitant]
     Active Substance: METAMIZOLE SODIUM
     Indication: Product used for unknown indication
     Dosage: 2 G, EVERY 8 HRS
     Route: 048
     Dates: start: 20210112
  5. UMECLIDINIUM BROMIDE\VILANTEROL TRIFENATATE [Concomitant]
     Active Substance: UMECLIDINIUM BROMIDE\VILANTEROL TRIFENATATE
     Indication: Product used for unknown indication
     Dosage: 1 DOSAGE FORM, DAILY
     Route: 055
     Dates: start: 20201130
  6. ZOLICO [Concomitant]
     Indication: Product used for unknown indication
     Dosage: 400 MG, DAILY
     Route: 048
     Dates: start: 20210112
  7. CROMATONBIC B12 [Concomitant]
     Indication: Product used for unknown indication
     Dosage: 1000 UG, OTHER (EVERY 9 WEEKS)
     Route: 030
     Dates: start: 20210112
  8. PRIMPERAN [Concomitant]
     Active Substance: METOCLOPRAMIDE HYDROCHLORIDE
     Indication: Product used for unknown indication
     Dosage: 10 ML, EVERY 8 HRS
     Route: 048
     Dates: start: 20210219
  9. PREGABALINA NORMON [Concomitant]
     Indication: Product used for unknown indication
     Dosage: 50 MG, DAILY
     Route: 048
     Dates: start: 20201219
  10. PARACETAMOL KERN PHARMA [Concomitant]
     Indication: Product used for unknown indication
     Dosage: 1000 MG, EVERY 8 HRS
     Route: 048
     Dates: start: 20201130
  11. FENTANILO MATRIX NORMON [Concomitant]
     Indication: Product used for unknown indication
     Dosage: 25 UG, OTHER (EVERY 72 HOURS)
     Route: 062
     Dates: start: 20210121
  12. MORPHINE [Concomitant]
     Active Substance: MORPHINE
     Indication: Product used for unknown indication
     Dosage: 10 MG, EVERY 4 HRS
     Route: 048
     Dates: start: 20210121

REACTIONS (1)
  - Hepatitis acute [Recovering/Resolving]

NARRATIVE: CASE EVENT DATE: 20210318
